FAERS Safety Report 7880748-7 (Version None)
Quarter: 2011Q4

REPORT INFORMATION
  Report Type: 
  Country: None (occurrence: None)
  Receive Date: 20111101
  Receipt Date: 20111019
  Transmission Date: 20120403
  Serious: Yes (Other)
  Sender: FDA-Public Use
  Company Number: CA-ELI_LILLY_AND_COMPANY-CA201110004852

PATIENT
  Sex: Female

DRUGS (9)
  1. ZYPREXA [Suspect]
     Dosage: 15 MG, EACH EVENING
     Route: 048
  2. CLOPIXOL [Concomitant]
  3. CLONAZEPAM [Concomitant]
  4. HALOPERIDOL [Concomitant]
  5. ZYPREXA [Suspect]
     Indication: SCHIZOAFFECTIVE DISORDER
     Dosage: 10 MG, EACH EVENING
     Route: 048
     Dates: start: 20060622
  6. ZYPREXA [Suspect]
     Indication: SCHIZOAFFECTIVE DISORDER
     Dosage: 30 MG, EACH EVENING
     Route: 048
  7. LITHIUM CITRATE [Concomitant]
  8. LAMOTRIGINE [Concomitant]
  9. EFFEXOR XR [Concomitant]

REACTIONS (9)
  - GLAUCOMA [None]
  - BLOOD CHOLESTEROL INCREASED [None]
  - INFECTION [None]
  - OVERDOSE [None]
  - BLOOD TRIGLYCERIDES INCREASED [None]
  - DIABETES MELLITUS [None]
  - RENAL FAILURE CHRONIC [None]
  - HYPERTENSION [None]
  - RASH [None]
